FAERS Safety Report 20626433 (Version 1)
Quarter: 2022Q1

REPORT INFORMATION
  Report Type: Spontaneous
  Country: US (occurrence: US)
  Receive Date: 20220323
  Receipt Date: 20220323
  Transmission Date: 20220423
  Serious: Yes (Hospitalization)
  Sender: FDA-Public Use
  Company Number: US-STRIDES ARCOLAB LIMITED-2022SP002998

PATIENT
  Age: 55 Year
  Sex: Male

DRUGS (9)
  1. OLANZAPINE [Suspect]
     Active Substance: OLANZAPINE
     Indication: Agitation
     Dosage: UNK
     Route: 065
     Dates: start: 2020
  2. CITALOPRAM [Suspect]
     Active Substance: CITALOPRAM HYDROBROMIDE
     Indication: Agitation
     Dosage: UNK
     Route: 065
  3. QUETIAPINE [Suspect]
     Active Substance: QUETIAPINE
     Indication: Agitation
     Dosage: UNK
     Route: 065
     Dates: start: 2020
  4. KETAMINE [Suspect]
     Active Substance: KETAMINE
     Indication: Agitation
     Dosage: UNK
     Route: 065
     Dates: start: 2020
  5. CLONIDINE [Concomitant]
     Active Substance: CLONIDINE
     Indication: Agitation
     Dosage: 0.1 MILLIGRAM, BID
     Route: 065
  6. CLONIDINE [Concomitant]
     Active Substance: CLONIDINE
     Dosage: 0.2 MILLIGRAM, BID (DOSE INCREASED)
     Route: 065
  7. CLONIDINE [Concomitant]
     Active Substance: CLONIDINE
     Dosage: UNK ,(PSYCHIATRIC REGIMEN AT DICHARGE)
     Route: 065
  8. PRAZOSIN [Concomitant]
     Active Substance: PRAZOSIN
     Indication: Agitation
     Dosage: 1 MILLIGRAM, AT BED TIME (NIGHTLY)  AN INCREASE IN THE DOSE EVERY 2-3 DAYS UNTIL REACHING A TARGET D
     Route: 065
  9. PRAZOSIN [Concomitant]
     Active Substance: PRAZOSIN
     Dosage: UNK, (PSYCHIATRIC REGIMEN AT DISCHARGE)
     Route: 065

REACTIONS (4)
  - Aggression [Not Recovered/Not Resolved]
  - Paradoxical drug reaction [Unknown]
  - Akathisia [Unknown]
  - Off label use [Unknown]

NARRATIVE: CASE EVENT DATE: 20200101
